FAERS Safety Report 7552271-0 (Version None)
Quarter: 2011Q2

REPORT INFORMATION
  Report Type: 
  Country: None (occurrence: None)
  Receive Date: 20110616
  Receipt Date: 20031027
  Transmission Date: 20111010
  Serious: Yes (Other)
  Sender: FDA-Public Use
  Company Number: PHHO2003CA12461

PATIENT
  Sex: Female

DRUGS (6)
  1. ASPIRIN [Concomitant]
     Dosage: 325 MG, UNK
  2. NORVASC [Concomitant]
     Dosage: 5 MG, QD
     Dates: start: 20000801, end: 20020801
  3. VASOTEC [Concomitant]
     Dates: start: 19920101, end: 20010501
  4. INSULIN [Concomitant]
     Indication: DIABETES MELLITUS
     Dates: start: 19980101
  5. DIOVAN HCT [Suspect]
     Indication: ESSENTIAL HYPERTENSION
     Dosage: 80 MG, UNK
     Route: 048
     Dates: start: 20010719
  6. LIPITOR [Concomitant]
     Dosage: 10 MG, QD
     Dates: start: 19920101, end: 20030801

REACTIONS (1)
  - LEUKAEMIA [None]
